FAERS Safety Report 10595165 (Version 3)
Quarter: 2014Q4

REPORT INFORMATION
  Report Type: Spontaneous
  Country: BE (occurrence: BE)
  Receive Date: 20141120
  Receipt Date: 20141203
  Transmission Date: 20150529
  Serious: Yes (Other)
  Sender: FDA-Public Use
  Company Number: BE-AMGEN-BELSP2014074941

PATIENT
  Age: 57 Year
  Sex: Female
  Weight: 68 kg

DRUGS (1)
  1. MIMPARA [Suspect]
     Active Substance: CINACALCET HYDROCHLORIDE
     Indication: HYPERPARATHYROIDISM
     Dosage: 90 MG, QD
     Route: 048
     Dates: start: 201104

REACTIONS (3)
  - Drug ineffective [Not Recovered/Not Resolved]
  - Parathyroid tumour benign [Unknown]
  - Nausea [Unknown]

NARRATIVE: CASE EVENT DATE: 20110407
